FAERS Safety Report 23711492 (Version 1)
Quarter: 2024Q2

REPORT INFORMATION
  Report Type: Spontaneous
  Country: PL (occurrence: PL)
  Receive Date: 20240405
  Receipt Date: 20240405
  Transmission Date: 20240716
  Serious: Yes (Hospitalization, Other)
  Sender: FDA-Public Use
  Company Number: PL-GTI-000218

PATIENT
  Age: 81 Year
  Sex: Male

DRUGS (1)
  1. PREDNISONE [Suspect]
     Active Substance: PREDNISONE
     Indication: Idiopathic interstitial pneumonia
     Route: 065

REACTIONS (11)
  - Listeriosis [Recovered/Resolved]
  - Sepsis [Recovered/Resolved]
  - Urinary tract infection [Recovered/Resolved]
  - Enterococcal infection [Recovered/Resolved]
  - Pneumonia fungal [Recovered/Resolved]
  - Interstitial lung disease [Unknown]
  - Disease progression [Unknown]
  - Idiopathic interstitial pneumonia [Unknown]
  - Rebound effect [Unknown]
  - Syncope [Recovered/Resolved]
  - Multiple-drug resistance [Recovered/Resolved]
